FAERS Safety Report 9499349 (Version 1)
Quarter: 2013Q3

REPORT INFORMATION
  Report Type: Spontaneous
  Country: US (occurrence: US)
  Receive Date: 20130905
  Receipt Date: 20130905
  Transmission Date: 20140515
  Serious: Yes (Hospitalization, Other)
  Sender: FDA-Public Use
  Company Number: US-JNJFOC-20130813892

PATIENT
  Age: 92 Year
  Sex: Female

DRUGS (2)
  1. BENADRYL [Suspect]
     Route: 048
  2. BENADRYL [Suspect]
     Indication: HYPERSOMNIA
     Route: 048

REACTIONS (4)
  - Pneumonia [Unknown]
  - Arthritis [Unknown]
  - Gait disturbance [Unknown]
  - Off label use [Unknown]
